FAERS Safety Report 24141599 (Version 2)
Quarter: 2024Q3

REPORT INFORMATION
  Report Type: Spontaneous
  Country: AU (occurrence: AU)
  Receive Date: 20240726
  Receipt Date: 20240802
  Transmission Date: 20241017
  Serious: Yes (Hospitalization)
  Sender: VALIDUS
  Company Number: AU-VALIDUS PHARMACEUTICALS LLC-AU-VDP-2024-019327

PATIENT

DRUGS (5)
  1. LASIX [Suspect]
     Active Substance: FUROSEMIDE
     Indication: Diuretic therapy
     Dosage: 40 MG, QD
     Route: 048
     Dates: start: 20231211, end: 20231212
  2. LASIX [Suspect]
     Active Substance: FUROSEMIDE
     Indication: Oedema peripheral
  3. ENCORAFENIB [Suspect]
     Active Substance: ENCORAFENIB
     Indication: Non-small cell lung cancer
     Dosage: 450 MG, QD
     Route: 048
     Dates: start: 20231213
  4. BINIMETINIB [Suspect]
     Active Substance: BINIMETINIB
     Indication: Non-small cell lung cancer
     Dosage: 45 MG, BID
     Route: 048
     Dates: start: 20220303, end: 20231108
  5. SASANLIMAB [Suspect]
     Active Substance: SASANLIMAB
     Indication: Non-small cell lung cancer
     Dosage: 300 MG, Q3WK
     Route: 048
     Dates: start: 20220303, end: 20230626

REACTIONS (1)
  - Dehydration [Recovered/Resolved]

NARRATIVE: CASE EVENT DATE: 20231213
